FAERS Safety Report 23719847 (Version 4)
Quarter: 2024Q2

REPORT INFORMATION
  Report Type: Spontaneous
  Country: US (occurrence: US)
  Receive Date: 20240408
  Receipt Date: 20240502
  Transmission Date: 20240716
  Serious: Yes (Other)
  Sender: FDA-Public Use
  Company Number: US-AMGEN-USASP2024067965

PATIENT
  Sex: Female

DRUGS (1)
  1. EVENITY [Suspect]
     Active Substance: ROMOSOZUMAB-AQQG
     Indication: Product used for unknown indication
     Dosage: UNK
     Route: 065
     Dates: start: 2023

REACTIONS (14)
  - Cardiac flutter [Recovering/Resolving]
  - Hypersensitivity [Not Recovered/Not Resolved]
  - Reflux gastritis [Recovering/Resolving]
  - Urine odour abnormal [Recovering/Resolving]
  - Oral discomfort [Recovering/Resolving]
  - Dizziness postural [Recovering/Resolving]
  - Dyspnoea [Recovering/Resolving]
  - Dysgeusia [Recovering/Resolving]
  - Tongue coated [Recovering/Resolving]
  - Blood pressure increased [Recovering/Resolving]
  - Headache [Not Recovered/Not Resolved]
  - Cardiac disorder [Not Recovered/Not Resolved]
  - Ill-defined disorder [Not Recovered/Not Resolved]
  - Arthralgia [Not Recovered/Not Resolved]

NARRATIVE: CASE EVENT DATE: 20240101
